FAERS Safety Report 24371596 (Version 2)
Quarter: 2024Q4

REPORT INFORMATION
  Report Type: Other
  Country: US (occurrence: US)
  Receive Date: 20240927
  Receipt Date: 20241010
  Transmission Date: 20250114
  Serious: Yes (Hospitalization)
  Sender: ALVOGEN
  Company Number: US-ALVOGEN-2024095547

PATIENT
  Age: 8 Year

DRUGS (4)
  1. FENTANYL [Suspect]
     Active Substance: FENTANYL
     Indication: Product used for unknown indication
  2. COCAINE [Suspect]
     Active Substance: COCAINE
     Indication: Product used for unknown indication
  3. CAFFEINE [Concomitant]
     Active Substance: CAFFEINE
     Indication: Product used for unknown indication
  4. DIPHENHYDRAMINE [Concomitant]
     Active Substance: DIPHENHYDRAMINE
     Indication: Product used for unknown indication

REACTIONS (4)
  - Toxic leukoencephalopathy [Recovered/Resolved]
  - Hypoperfusion [Recovered/Resolved]
  - Accidental exposure to product by child [Unknown]
  - Incorrect route of product administration [Unknown]
